FAERS Safety Report 5727852-7 (Version None)
Quarter: 2008Q2

REPORT INFORMATION
  Report Type: 
  Country: None (occurrence: None)
  Receive Date: 20080501
  Receipt Date: 20080206
  Transmission Date: 20081010
  Serious: Yes (Other)
  Sender: FDA-Public Use
  Company Number: PHEH2008US01617

PATIENT
  Sex: Female

DRUGS (2)
  1. LOTREL [Suspect]
     Dosage: 10/20MG
  2. TOPROL-XL [Concomitant]

REACTIONS (4)
  - CHOKING [None]
  - COUGH [None]
  - OEDEMA PERIPHERAL [None]
  - PHARYNGEAL OEDEMA [None]
